FAERS Safety Report 4291581-X (Version None)
Quarter: 2004Q1

REPORT INFORMATION
  Report Type: 
  Country: None (occurrence: None)
  Receive Date: 20040211
  Receipt Date: 20031013
  Transmission Date: 20041129
  Serious: Yes (Hospitalization)
  Sender: FDA-Public Use
  Company Number: US-GLAXOSMITHKLINE-A0429996A

PATIENT
  Age: 25 Year
  Sex: Female

DRUGS (3)
  1. IMITREX [Suspect]
     Indication: MIGRAINE
     Dosage: 6MG SINGLE DOSE
     Route: 058
     Dates: start: 20030919, end: 20030919
  2. ESTRATEST [Concomitant]
  3. PROTONIX [Concomitant]

REACTIONS (3)
  - ANAPHYLACTIC REACTION [None]
  - OROPHARYNGEAL SWELLING [None]
  - PALPITATIONS [None]
